FAERS Safety Report 10793097 (Version 1)
Quarter: 2015Q1

REPORT INFORMATION
  Report Type: Spontaneous
  Country: IN (occurrence: IN)
  Receive Date: 20150213
  Receipt Date: 20150213
  Transmission Date: 20150721
  Serious: Yes (Other)
  Sender: FDA-Public Use
  Company Number: IN-WATSON-2015-01506

PATIENT
  Age: 25 Year
  Sex: Male
  Weight: 73 kg

DRUGS (2)
  1. OLANZAPINE (UNKNOWN) [Suspect]
     Active Substance: OLANZAPINE
     Indication: SCHIZOPHRENIA, PARANOID TYPE
     Dosage: 20 MG, DAILY
     Route: 065
  2. HALOPERIDOL (UNKNOWN) [Suspect]
     Active Substance: HALOPERIDOL
     Indication: SCHIZOPHRENIA, PARANOID TYPE
     Dosage: UNKNOWN
     Route: 065

REACTIONS (2)
  - Face oedema [Recovered/Resolved]
  - Extrapyramidal disorder [Unknown]
